FAERS Safety Report 7420561-8 (Version None)
Quarter: 2011Q2

REPORT INFORMATION
  Report Type: 
  Country: None (occurrence: None)
  Receive Date: 20110418
  Receipt Date: 20110413
  Transmission Date: 20111010
  Serious: No
  Sender: FDA-Public Use
  Company Number: US-PFIZER INC-2011081690

PATIENT
  Sex: Female
  Weight: 74.83 kg

DRUGS (3)
  1. ADVIL [Suspect]
     Indication: MYALGIA
  2. ADVIL [Suspect]
     Indication: HEADACHE
     Dosage: 200 MG, 3X/DAY
     Route: 048
     Dates: start: 20101001, end: 20101001
  3. CAFFEINE [Suspect]

REACTIONS (1)
  - TINNITUS [None]
